FAERS Safety Report 15153870 (Version 3)
Quarter: 2020Q4

REPORT INFORMATION
  Report Type: Spontaneous
  Country: US (occurrence: US)
  Receive Date: 20180717
  Receipt Date: 20201221
  Transmission Date: 20210113
  Serious: Yes (Other)
  Sender: FDA-Public Use
  Company Number: US-ASTRAZENECA-2018SE81038

PATIENT
  Sex: Female
  Weight: 66.7 kg

DRUGS (7)
  1. SYMBICORT [Suspect]
     Active Substance: BUDESONIDE\FORMOTEROL FUMARATE DIHYDRATE
     Indication: BRONCHITIS CHRONIC
     Dosage: 80/6.5, 2 PUFFS TWICE PER DAY
     Route: 055
  2. ACETALCYSTINE [Concomitant]
     Indication: LUNG DISORDER
     Route: 048
  3. SYMBICORT [Suspect]
     Active Substance: BUDESONIDE\FORMOTEROL FUMARATE DIHYDRATE
     Indication: ASTHMA
     Dosage: 80/6.5, 2 PUFFS TWICE PER DAY
     Route: 055
  4. DIVAN HCT [Concomitant]
     Indication: BLOOD PRESSURE MEASUREMENT
     Dosage: 160/25 MG, DAILY
     Route: 048
  5. ASPIRIN. [Concomitant]
     Active Substance: ASPIRIN
     Route: 048
  6. ADVIL [Concomitant]
     Active Substance: IBUPROFEN
     Indication: PAIN
     Route: 048
  7. VIT. D3 [Concomitant]
     Indication: ARTHRITIS
     Route: 048

REACTIONS (11)
  - Alpha-1 antitrypsin deficiency [Unknown]
  - Product use in unapproved indication [Unknown]
  - Glaucoma [Unknown]
  - Body height decreased [Unknown]
  - Pneumonia [Unknown]
  - Device issue [Unknown]
  - Memory impairment [Unknown]
  - Cataract [Unknown]
  - Wrong technique in device usage process [Unknown]
  - Off label use [Unknown]
  - Ocular hypertension [Unknown]
